FAERS Safety Report 7465165-6 (Version None)
Quarter: 2011Q2

REPORT INFORMATION
  Report Type: 
  Country: None (occurrence: None)
  Receive Date: 20110509
  Receipt Date: 20100924
  Transmission Date: 20111010
  Serious: No
  Sender: FDA-Public Use
  Company Number: US-SANOFI-AVENTIS-2010SA058878

PATIENT
  Age: 53 Year
  Sex: Female
  Weight: 81.65 kg

DRUGS (4)
  1. INSULIN DETEMIR [Concomitant]
     Dosage: DOSE:40 UNIT(S)
     Route: 065
  2. APIDRA [Suspect]
     Dosage: DOSE:40 UNIT(S)
     Route: 058
  3. LANTUS [Suspect]
     Dosage: DOSE:6 UNIT(S)
     Route: 058
  4. SOLOSTAR [Suspect]
     Dates: start: 20100801

REACTIONS (1)
  - VISION BLURRED [None]
